FAERS Safety Report 6701260-4 (Version None)
Quarter: 2010Q2

REPORT INFORMATION
  Report Type: 
  Country: None (occurrence: None)
  Receive Date: 20100427
  Receipt Date: 20100413
  Transmission Date: 20101027
  Serious: Yes (Death, Other)
  Sender: FDA-Public Use
  Company Number: 009531

PATIENT
  Age: 15 Year
  Sex: Female

DRUGS (8)
  1. BUSULFEX [Suspect]
     Indication: STEM CELL TRANSPLANT
  2. CYCLOPHOSPHAMIDE [Concomitant]
  3. ATG (ANTILYMPHOCYTE IMMUNOGLOBULIN (HORSE)) [Concomitant]
  4. CYCLOSPORINE [Concomitant]
  5. CORTICOSTEROIDS FOR SYSTEMIC USE [Concomitant]
  6. CEFTAZIDIME [Concomitant]
  7. VANCOMYCIN [Concomitant]
  8. METRONIDAZOLE [Concomitant]

REACTIONS (6)
  - ACUTE RESPIRATORY FAILURE [None]
  - CONFUSIONAL STATE [None]
  - CYTOMEGALOVIRUS INFECTION [None]
  - INTERSTITIAL LUNG DISEASE [None]
  - PYREXIA [None]
  - TOXOPLASMOSIS [None]
